FAERS Safety Report 6559041-0 (Version None)
Quarter: 2010Q1

REPORT INFORMATION
  Report Type: 
  Country: None (occurrence: None)
  Receive Date: 20100129
  Receipt Date: 20100119
  Transmission Date: 20100710
  Serious: Yes (Hospitalization, Other)
  Sender: FDA-Public Use
  Company Number: US-CELGENEUS-163-21880-09091402

PATIENT
  Sex: Female

DRUGS (1)
  1. REVLIMID [Suspect]
     Indication: MALIGNANT HISTIOCYTOSIS
     Route: 048
     Dates: start: 20090501, end: 20090908

REACTIONS (2)
  - BLOOD POTASSIUM DECREASED [None]
  - MUSCULOSKELETAL CHEST PAIN [None]
